FAERS Safety Report 6589349-4 (Version None)
Quarter: 2010Q1

REPORT INFORMATION
  Report Type: 
  Country: None (occurrence: None)
  Receive Date: 20100205
  Receipt Date: 20100125
  Transmission Date: 20100710
  Serious: Yes (Death)
  Sender: FDA-Public Use
  Company Number: A-US2010-32962

PATIENT
  Age: 3 Year
  Sex: Female

DRUGS (1)
  1. TRACLEER [Suspect]
     Indication: PULMONARY ARTERIAL HYPERTENSION
     Dosage: 15.625 MG, BID, ORAL
     Route: 048
     Dates: start: 20081024

REACTIONS (2)
  - OFF LABEL USE [None]
  - RESPIRATORY SYNCYTIAL VIRUS INFECTION [None]
